FAERS Safety Report 21117254 (Version 4)
Quarter: 2022Q3

REPORT INFORMATION
  Report Type: Spontaneous
  Country: JP (occurrence: JP)
  Receive Date: 20220722
  Receipt Date: 20220916
  Transmission Date: 20221026
  Serious: No
  Sender: FDA-Public Use
  Company Number: JP-JNJFOC-20220712123

PATIENT
  Age: 5 Decade
  Sex: Male

DRUGS (1)
  1. SIMPONI [Suspect]
     Active Substance: GOLIMUMAB
     Indication: Colitis ulcerative
     Dosage: 50.00 MG / 0.50 ML
     Route: 058
     Dates: end: 20220702

REACTIONS (5)
  - Device deployment issue [Recovered/Resolved]
  - Needle issue [Unknown]
  - Injury associated with device [Recovered/Resolved]
  - Syringe issue [Unknown]
  - Underdose [Unknown]

NARRATIVE: CASE EVENT DATE: 20220702
